FAERS Safety Report 7599662-X (Version None)
Quarter: 2011Q3

REPORT INFORMATION
  Report Type: 
  Country: None (occurrence: None)
  Receive Date: 20110711
  Receipt Date: 20110628
  Transmission Date: 20111222
  Serious: Yes (Life-Threatening, Hospitalization, Disabling, Other)
  Sender: FDA-Public Use
  Company Number: US-ELI_LILLY_AND_COMPANY-USA040876949

PATIENT
  Sex: Female

DRUGS (7)
  1. WELLBUTRIN [Concomitant]
     Dosage: UNK, UNKNOWN
  2. DEPAKOTE [Concomitant]
     Dosage: UNK, UNKNOWN
  3. CELEXA [Concomitant]
     Dosage: UNK, UNKNOWN
  4. BUSPIRONE HCL [Concomitant]
     Dosage: UNK, UNKNOWN
  5. SYNTHROID [Concomitant]
     Dosage: UNK, UNKNOWN
  6. ZYPREXA [Suspect]
     Indication: BIPOLAR DISORDER
     Dosage: UNK, UNKNOWN
     Route: 048
     Dates: start: 20010101
  7. GEODON [Concomitant]
     Dates: end: 20101220

REACTIONS (8)
  - CARDIAC ARREST [None]
  - OVERDOSE [None]
  - HALLUCINATION [None]
  - DIZZINESS [None]
  - NAUSEA [None]
  - COMA [None]
  - RESPIRATORY ARREST [None]
  - HYPOXIC-ISCHAEMIC ENCEPHALOPATHY [None]
